FAERS Safety Report 7389898-5 (Version None)
Quarter: 2011Q1

REPORT INFORMATION
  Report Type: 
  Country: None (occurrence: None)
  Receive Date: 20110325
  Receipt Date: 20110315
  Transmission Date: 20110831
  Serious: Yes (Other)
  Sender: FDA-Public Use
  Company Number: 2011SP003073

PATIENT
  Age: 30 Year
  Sex: Female
  Weight: 47 kg

DRUGS (6)
  1. GRACIAL (DESOGESTREL/ETHINYLESTRADIOL /00570801/) [Suspect]
     Indication: ACNE
     Dosage: PO
     Route: 048
     Dates: start: 20040101, end: 20101201
  2. GRACIAL (DESOGESTREL/ETHINYLESTRADIOL /00570801/) [Suspect]
     Indication: POLYCYSTIC OVARIES
     Dosage: PO
     Route: 048
     Dates: start: 20040101, end: 20101201
  3. GRACIAL (DESOGESTREL/ETHINYLESTRADIOL /00570801/) [Suspect]
     Indication: CONTRACEPTION
     Dosage: PO
     Route: 048
     Dates: start: 20040101, end: 20101201
  4. GRACIAL (DESOGESTREL/ETHINYLESTRADIOL /00570801/) [Suspect]
     Indication: ACNE
     Dosage: PO
     Route: 048
     Dates: start: 20110101
  5. GRACIAL (DESOGESTREL/ETHINYLESTRADIOL /00570801/) [Suspect]
     Indication: POLYCYSTIC OVARIES
     Dosage: PO
     Route: 048
     Dates: start: 20110101
  6. GRACIAL (DESOGESTREL/ETHINYLESTRADIOL /00570801/) [Suspect]
     Indication: CONTRACEPTION
     Dosage: PO
     Route: 048
     Dates: start: 20110101

REACTIONS (5)
  - ACNE [None]
  - VOMITING [None]
  - BREAST PAIN [None]
  - BREAST MASS [None]
  - INAPPROPRIATE SCHEDULE OF DRUG ADMINISTRATION [None]
